FAERS Safety Report 5579222-2 (Version None)
Quarter: 2008Q1

REPORT INFORMATION
  Report Type: 
  Country: None (occurrence: None)
  Receive Date: 20080102
  Receipt Date: 20071227
  Transmission Date: 20080703
  Serious: Yes (Other)
  Sender: FDA-Public Use
  Company Number: US-GENENTECH-253485

PATIENT
  Sex: Male
  Weight: 54.5 kg

DRUGS (3)
  1. SOMATROPIN [Suspect]
     Indication: LEUKAEMIA
     Dosage: 3.4 MG, QD
     Dates: start: 20020830, end: 20071227
  2. DOXYCYCLINE HYCLATE [Concomitant]
     Indication: DRUG USE FOR UNKNOWN INDICATION
     Dosage: 1 UNK, QD
     Route: 048
  3. ZYRTEC [Concomitant]
     Indication: DRUG USE FOR UNKNOWN INDICATION
     Dosage: 1 TABLET, QD
     Route: 048
     Dates: start: 20070426

REACTIONS (1)
  - BASAL CELL CARCINOMA [None]
